FAERS Safety Report 6491601-8 (Version None)
Quarter: 2009Q4

REPORT INFORMATION
  Report Type: 
  Country: None (occurrence: None)
  Receive Date: 20091208
  Receipt Date: 20091124
  Transmission Date: 20100525
  Serious: Yes (Other)
  Sender: FDA-Public Use
  Company Number: CLOF-1000789

PATIENT
  Age: 74 Year

DRUGS (1)
  1. CLOLAR [Suspect]

REACTIONS (1)
  - COLITIS [None]
